FAERS Safety Report 5136680-5 (Version None)
Quarter: 2006Q4

REPORT INFORMATION
  Report Type: 
  Country: None (occurrence: None)
  Receive Date: 20061027
  Receipt Date: 20061023
  Transmission Date: 20070319
  Serious: Yes (Hospitalization, Disabling)
  Sender: FDA-Public Use
  Company Number: CM-MERCK-0610USA12606

PATIENT
  Age: 17 Year
  Sex: Female

DRUGS (1)
  1. STROMECTOL [Suspect]
     Route: 048
     Dates: start: 20060528, end: 20060528

REACTIONS (7)
  - CONJUNCTIVAL HAEMORRHAGE [None]
  - EYE DISORDER [None]
  - EYELID OEDEMA [None]
  - HEADACHE [None]
  - PANOPHTHALMITIS [None]
  - PYREXIA [None]
  - VERTIGO [None]
